FAERS Safety Report 7365671-9 (Version None)
Quarter: 2011Q1

REPORT INFORMATION
  Report Type: 
  Country: None (occurrence: None)
  Receive Date: 20110316
  Receipt Date: 20110316
  Transmission Date: 20110831
  Serious: Yes (Disabling)
  Sender: FDA-Public Use
  Company Number: None

PATIENT
  Sex: Male

DRUGS (3)
  1. OMNISCAN [Suspect]
     Indication: NUCLEAR MAGNETIC RESONANCE IMAGING THORACIC
     Dosage: 40 CC INTRAVENOUSLY
     Route: 042
     Dates: start: 20040625
  2. OMNISCAN [Suspect]
     Indication: NUCLEAR MAGNETIC RESONANCE IMAGING ABDOMINAL
     Dosage: 50CC INTRAVENOUSLY
     Route: 042
     Dates: start: 20040626
  3. OMNISCAN [Suspect]
     Indication: NUCLEAR MAGNETIC RESONANCE IMAGING THORACIC
     Dosage: 50CC INTRAVENOUSLY
     Route: 042
     Dates: start: 20040626

REACTIONS (8)
  - PAIN [None]
  - SKIN PLAQUE [None]
  - MOVEMENT DISORDER [None]
  - NEOPLASM SKIN [None]
  - SKIN DISORDER [None]
  - SKIN HYPERTROPHY [None]
  - HAEMORRHAGIC DIATHESIS [None]
  - MUSCULOSKELETAL STIFFNESS [None]
